FAERS Safety Report 6411633-5 (Version None)
Quarter: 2009Q4

REPORT INFORMATION
  Report Type: 
  Country: None (occurrence: None)
  Receive Date: 20091023
  Receipt Date: 20091015
  Transmission Date: 20100525
  Serious: Yes (Other)
  Sender: FDA-Public Use
  Company Number: US-ROCHE-509835

PATIENT
  Age: 83 Year
  Sex: Female

DRUGS (4)
  1. BONIVA [Suspect]
     Indication: OSTEOPOROSIS
     Dosage: USE WITH IBANDRONIC ACID FOR 2-1/2 YEARS
     Route: 065
     Dates: start: 20060701, end: 20090101
  2. ZOCOR [Concomitant]
  3. SYNTHROID [Concomitant]
  4. FORTEO [Concomitant]
     Dates: start: 20090331

REACTIONS (3)
  - BACK PAIN [None]
  - BONE DENSITY DECREASED [None]
  - FALL [None]
